FAERS Safety Report 5431550-7 (Version None)
Quarter: 2007Q3

REPORT INFORMATION
  Report Type: 
  Country: None (occurrence: None)
  Receive Date: 20070830
  Receipt Date: 20070821
  Transmission Date: 20080115
  Serious: Yes (Hospitalization)
  Sender: FDA-Public Use
  Company Number: FR-JNJFOC-20070804535

PATIENT
  Sex: Male

DRUGS (4)
  1. REMINYL [Suspect]
     Indication: DEMENTIA ALZHEIMER'S TYPE
     Route: 048
  2. RISPERDAL [Suspect]
     Indication: AGITATION
     Route: 048
  3. LANTUS [Concomitant]
     Dosage: IN THE EVENING
  4. NOVONORM [Concomitant]

REACTIONS (4)
  - BLOOD OSMOLARITY INCREASED [None]
  - DEHYDRATION [None]
  - DIABETES MELLITUS [None]
  - KETONURIA [None]
